FAERS Safety Report 9935309 (Version 4)
Quarter: 2014Q2

REPORT INFORMATION
  Report Type: Report from Study
  Country: US (occurrence: US)
  Receive Date: 20140228
  Receipt Date: 20140620
  Transmission Date: 20141212
  Serious: Yes (Other)
  Sender: FDA-Public Use
  Company Number: US-JNJFOC-20140208859

PATIENT
  Sex: Female
  Weight: 59.4 kg

DRUGS (2)
  1. PANCREAZE [Suspect]
     Indication: CYSTIC FIBROSIS
     Dosage: 15 CAPSULES PER MEAL
     Route: 065
  2. PANCREAZE [Suspect]
     Indication: CYSTIC FIBROSIS
     Dosage: 2 CAPSULES PER MEAL
     Route: 065

REACTIONS (1)
  - Clostridium difficile colitis [Recovering/Resolving]
